FAERS Safety Report 4419711-7 (Version None)
Quarter: 2004Q3

REPORT INFORMATION
  Report Type: 
  Country: None (occurrence: None)
  Receive Date: 20040804
  Receipt Date: 20040729
  Transmission Date: 20050211
  Serious: Yes (Hospitalization)
  Sender: FDA-Public Use
  Company Number: 2004-07-0358

PATIENT
  Age: 68 Year
  Sex: Female
  Weight: 50 kg

DRUGS (10)
  1. REBETOL [Suspect]
     Indication: HEPATITIS C
     Dosage: 600 - 400 MG* ORAL
     Route: 048
     Dates: start: 20030313, end: 20030531
  2. REBETOL [Suspect]
     Indication: HEPATITIS C
     Dosage: 600 - 400 MG* ORAL
     Route: 048
     Dates: start: 20030313, end: 20030903
  3. REBETOL [Suspect]
     Indication: HEPATITIS C
     Dosage: 600 - 400 MG* ORAL
     Route: 048
     Dates: start: 20030601, end: 20030903
  4. INTRON A [Suspect]
     Dosage: 6 MU* QD-QWK INTRAMUSCUL
     Route: 030
     Dates: start: 20030313, end: 20030325
  5. INTRON A [Suspect]
     Dosage: 6 MU* QD-QWK INTRAMUSCUL
     Route: 030
     Dates: start: 20030327, end: 20030530
  6. INTRON A [Suspect]
     Dosage: 6 MU* QD-QWK INTRAMUSCUL
     Route: 030
     Dates: start: 20030602, end: 20030903
  7. INTRON A [Suspect]
     Dosage: 6 MU* QD-QWK INTRAMUSCUL
     Route: 030
     Dates: start: 20031127, end: 20040311
  8. INTRON A [Suspect]
     Dosage: 6 MU* QD-QWK INTRAMUSCUL
     Route: 030
     Dates: start: 20030313, end: 20040430
  9. INTRON A [Suspect]
     Dosage: 6 MU* QD-QWK INTRAMUSCUL
     Route: 030
     Dates: start: 20040322, end: 20040430
  10. NIFEDIPINE CAPSULES [Concomitant]

REACTIONS (2)
  - BLOOD PRESSURE INCREASED [None]
  - CEREBRAL HAEMORRHAGE [None]
